FAERS Safety Report 11595524 (Version 2)
Quarter: 2015Q4

REPORT INFORMATION
  Report Type: Spontaneous
  Country: JP (occurrence: JP)
  Receive Date: 20151006
  Receipt Date: 20151105
  Transmission Date: 20160304
  Serious: Yes (Other)
  Sender: FDA-Public Use
  Company Number: JP-009507513-1510JPN001155

PATIENT

DRUGS (3)
  1. PEGINTERFERON ALFA-2B [Suspect]
     Active Substance: PEGINTERFERON ALFA-2B
     Indication: CHRONIC HEPATITIS C
     Dosage: DAILY DOSAGE UNKNOWN
     Route: 058
  2. SOVRIAD [Suspect]
     Active Substance: SIMEPREVIR
     Indication: CHRONIC HEPATITIS C
     Dosage: DAILY DOSAGE UNKNOWN
     Route: 048
  3. REBETOL [Suspect]
     Active Substance: RIBAVIRIN
     Indication: CHRONIC HEPATITIS C
     Dosage: DAILY DOSAGE UNKNOWN
     Route: 048

REACTIONS (3)
  - Carcinogenicity [Unknown]
  - Decreased appetite [Unknown]
  - Malaise [Unknown]
